FAERS Safety Report 4389335-9 (Version None)
Quarter: 2004Q2

REPORT INFORMATION
  Report Type: 
  Country: None (occurrence: None)
  Receive Date: 20040630
  Receipt Date: 20040616
  Transmission Date: 20050107
  Serious: Yes (Other)
  Sender: FDA-Public Use
  Company Number: 2004219967JP

PATIENT
  Age: 56 Year
  Sex: Male

DRUGS (3)
  1. SOLU-MEDROL [Suspect]
  2. TACROLIMUS (TACROLIMUS) [Concomitant]
  3. MYCOPHENOLATE MOFETIL (MYCOPHENOLATE MOFETIL) [Concomitant]

REACTIONS (3)
  - BK VIRUS INFECTION [None]
  - EPIDEMIC NEPHROPATHY [None]
  - KIDNEY TRANSPLANT REJECTION [None]
